FAERS Safety Report 21693857 (Version 1)
Quarter: 2022Q4

REPORT INFORMATION
  Report Type: Spontaneous
  Country: US (occurrence: None)
  Receive Date: 20221206
  Receipt Date: 20221206
  Transmission Date: 20230113
  Serious: No
  Sender: FDA-Public Use
  Company Number: None

PATIENT

DRUGS (1)
  1. KANJINTI [Suspect]
     Active Substance: TRASTUZUMAB-ANNS

REACTIONS (4)
  - Product substitution issue [None]
  - Therapeutic response changed [None]
  - Diarrhoea [None]
  - Disease recurrence [None]
